FAERS Safety Report 4873909-2 (Version None)
Quarter: 2006Q1

REPORT INFORMATION
  Report Type: 
  Country: None (occurrence: None)
  Receive Date: 20060106
  Receipt Date: 20051215
  Transmission Date: 20060701
  Serious: Yes (Other)
  Sender: FDA-Public Use
  Company Number: PHEH2005US13550

PATIENT
  Age: 62 Year
  Sex: Female
  Weight: 145 kg

DRUGS (1)
  1. LAMISIL [Suspect]
     Indication: NAIL TINEA
     Dosage: 250 MG, QD
     Route: 048
     Dates: start: 20050728, end: 20051021

REACTIONS (2)
  - AGEUSIA [None]
  - ANOSMIA [None]
